FAERS Safety Report 5472497-X (Version None)
Quarter: 2007Q4

REPORT INFORMATION
  Report Type: 
  Country: None (occurrence: None)
  Receive Date: 20071001
  Receipt Date: 20070926
  Transmission Date: 20080405
  Serious: Yes (Other)
  Sender: FDA-Public Use
  Company Number: JP-SP-2007-00418

PATIENT
  Age: 58 Year
  Sex: Male

DRUGS (7)
  1. IMMUCYST [Suspect]
     Indication: BLADDER CANCER
     Route: 043
     Dates: start: 20060922, end: 20061130
  2. IMMUCYST [Suspect]
     Route: 043
     Dates: start: 20060922, end: 20061130
  3. IMMUCYST [Suspect]
     Route: 043
     Dates: start: 20060922, end: 20061130
  4. PROPIVERINE HYDROCHLORIDE [Concomitant]
     Dates: start: 20061003, end: 20070316
  5. NAFTOPIDIL [Concomitant]
     Dates: start: 20061003, end: 20070316
  6. RANITIDINE HYDROCHLORIDE [Concomitant]
     Dates: start: 20061003, end: 20070607
  7. FEXOFENADINE HYDROCHLORIDE [Concomitant]
     Dates: start: 20070216, end: 20070617

REACTIONS (4)
  - CONTRACTED BLADDER [None]
  - HAEMATURIA [None]
  - POLLAKIURIA [None]
  - PYURIA [None]
